FAERS Safety Report 4985798-6 (Version None)
Quarter: 2006Q2

REPORT INFORMATION
  Report Type: 
  Country: None (occurrence: None)
  Receive Date: 20060428
  Receipt Date: 20050503
  Transmission Date: 20061013
  Serious: No
  Sender: FDA-Public Use
  Company Number: US-GLAXOSMITHKLINE-A0557067A

PATIENT
  Age: 25 Year
  Sex: Female

DRUGS (3)
  1. AMERGE [Suspect]
     Indication: MIGRAINE
     Dosage: 2.5MG TWICE PER DAY
     Route: 048
     Dates: start: 20050429, end: 20050502
  2. BIRTH CONTROL [Concomitant]
  3. XANAX [Concomitant]

REACTIONS (2)
  - NECK PAIN [None]
  - THERAPEUTIC RESPONSE DECREASED [None]
